FAERS Safety Report 18206927 (Version 1)
Quarter: 2020Q3

REPORT INFORMATION
  Report Type: Spontaneous
  Country: US (occurrence: US)
  Receive Date: 20200828
  Receipt Date: 20200828
  Transmission Date: 20201103
  Serious: No
  Sender: FDA-Public Use
  Company Number: US-JNJFOC-20200838000

PATIENT
  Sex: Female
  Weight: 70.7 kg

DRUGS (3)
  1. TOPIRAMATE. [Suspect]
     Active Substance: TOPIRAMATE
     Indication: SEIZURE
     Route: 048
  2. LAMICTAL [Suspect]
     Active Substance: LAMOTRIGINE
     Indication: SEIZURE
     Route: 065
  3. GABITRIL [Suspect]
     Active Substance: TIAGABINE HYDROCHLORIDE
     Indication: SEIZURE
     Route: 065

REACTIONS (3)
  - Illness [Unknown]
  - Feeling drunk [Unknown]
  - Dizziness [Unknown]
